FAERS Safety Report 9288146 (Version 1)
Quarter: 2013Q2

REPORT INFORMATION
  Report Type: Report from Study
  Country: US (occurrence: US)
  Receive Date: 20130514
  Receipt Date: 20130514
  Transmission Date: 20140414
  Serious: Yes (Other)
  Sender: FDA-Public Use
  Company Number: US-JNJFOC-20130501510

PATIENT
  Age: 53 Year
  Sex: Female
  Weight: 68.49 kg

DRUGS (5)
  1. STELARA [Suspect]
     Indication: PSORIASIS
     Route: 058
     Dates: start: 20130408
  2. METHOTREXATE [Concomitant]
     Indication: ARTHRITIS
     Route: 048
     Dates: start: 2010
  3. FOLIC ACID [Concomitant]
     Route: 048
     Dates: start: 2010
  4. MULTIVIT [Concomitant]
     Indication: NUTRITIONAL SUPPLEMENTATION
     Route: 048
     Dates: start: 2012
  5. VALERIAN ROOT [Concomitant]
     Indication: SLEEP DISORDER
     Route: 048

REACTIONS (2)
  - Arthritis [Not Recovered/Not Resolved]
  - Rash pustular [Not Recovered/Not Resolved]
